FAERS Safety Report 10967834 (Version 1)
Quarter: 2015Q1

REPORT INFORMATION
  Report Type: Spontaneous
  Country: US (occurrence: None)
  Receive Date: 20150226
  Receipt Date: 20150226
  Transmission Date: 20150721
  Serious: No
  Sender: FDA-Public Use
  Company Number: TPA2010A00868

PATIENT
  Age: 42 Year
  Sex: Male

DRUGS (3)
  1. ULORIC [Suspect]
     Active Substance: FEBUXOSTAT
     Indication: GOUT
     Route: 048
  2. UNSPECIFIED ASTHMA MEDICATON (PHENOBARBITAL, EPHEDRINE HYDROCHLORIDE, CAFFEINE, AMINOPHYLLINE, POTASSIUM IODIDE) [Concomitant]
  3. UNPSECIFIED ANTIHYPERTENSIVE (ANTIHYPERTENSIVES) [Concomitant]

REACTIONS (2)
  - Erectile dysfunction [None]
  - Urine analysis abnormal [None]
